FAERS Safety Report 8358105-9 (Version None)
Quarter: 2012Q2

REPORT INFORMATION
  Report Type: 
  Country: None (occurrence: None)
  Receive Date: 20120514
  Receipt Date: 20120509
  Transmission Date: 20120825
  Serious: Yes (Other)
  Sender: FDA-Public Use
  Company Number: VE-PFIZER INC-2012114527

PATIENT
  Sex: Female

DRUGS (3)
  1. AKINETON [Concomitant]
  2. SINEMET [Concomitant]
  3. LIPITOR [Suspect]

REACTIONS (1)
  - POISONING [None]
